FAERS Safety Report 5953750-X (Version None)
Quarter: 2008Q4

REPORT INFORMATION
  Report Type: 
  Country: None (occurrence: None)
  Receive Date: 20081114
  Receipt Date: 20081022
  Transmission Date: 20090506
  Serious: No
  Sender: FDA-Public Use
  Company Number: US-BAYER-200832736NA

PATIENT
  Age: 84 Year
  Sex: Male

DRUGS (2)
  1. CIPRO [Suspect]
     Indication: CYSTITIS
     Dates: start: 20080101
  2. AMLODIPINE [Concomitant]

REACTIONS (1)
  - CYSTITIS [None]
